FAERS Safety Report 6583874-8 (Version None)
Quarter: 2010Q1

REPORT INFORMATION
  Report Type: 
  Country: None (occurrence: None)
  Receive Date: 20100216
  Receipt Date: 20091120
  Transmission Date: 20100710
  Serious: No
  Sender: FDA-Public Use
  Company Number: US-ABBOTT-09P-163-0611033-00

PATIENT
  Sex: Female
  Weight: 70.824 kg

DRUGS (8)
  1. SIMCOR [Suspect]
     Indication: BLOOD CHOLESTEROL INCREASED
     Dosage: 500/20 MG
     Dates: start: 20091112, end: 20091118
  2. SIMCOR [Suspect]
     Dosage: 1000/20 MG
     Dates: start: 20091119
  3. KAPIDEX [Concomitant]
     Indication: DRUG USE FOR UNKNOWN INDICATION
  4. TRAZODONE HCL [Concomitant]
     Indication: DRUG USE FOR UNKNOWN INDICATION
  5. CELEBREX [Concomitant]
     Indication: DRUG USE FOR UNKNOWN INDICATION
  6. SYNTHROID [Concomitant]
     Indication: DRUG USE FOR UNKNOWN INDICATION
  7. FLEXERIL [Concomitant]
     Indication: DRUG USE FOR UNKNOWN INDICATION
  8. CYMBALTA [Concomitant]
     Indication: DRUG USE FOR UNKNOWN INDICATION

REACTIONS (4)
  - ABDOMINAL DISCOMFORT [None]
  - ERYTHEMA [None]
  - NAUSEA [None]
  - PRURITUS [None]
